FAERS Safety Report 5814295-0 (Version None)
Quarter: 2008Q3

REPORT INFORMATION
  Report Type: 
  Country: None (occurrence: None)
  Receive Date: 20080717
  Receipt Date: 20080710
  Transmission Date: 20090109
  Serious: Yes (Hospitalization)
  Sender: FDA-Public Use
  Company Number: US-ELI_LILLY_AND_COMPANY-US200807002055

PATIENT
  Sex: Female

DRUGS (2)
  1. HUMALOG [Suspect]
     Dates: start: 19960101
  2. HUMULIN N [Suspect]
     Dosage: UNK, UNK

REACTIONS (4)
  - BLOOD GLUCOSE INCREASED [None]
  - FEAR [None]
  - MENTAL IMPAIRMENT [None]
  - WEIGHT INCREASED [None]
